FAERS Safety Report 6190982-2 (Version None)
Quarter: 2009Q2

REPORT INFORMATION
  Report Type: 
  Country: None (occurrence: None)
  Receive Date: 20090513
  Receipt Date: 20090429
  Transmission Date: 20091009
  Serious: Yes (Death, Life-Threatening, Hospitalization, Other)
  Sender: FDA-Public Use
  Company Number: ADE# 09-191DPR

PATIENT
  Age: 83 Year
  Sex: Male

DRUGS (17)
  1. DIGOXIN [Suspect]
     Indication: CARDIAC OPERATION
     Dates: start: 20070301
  2. CILOSTAZOL [Concomitant]
  3. COLESTIPOL HYDROCHLORIDE [Concomitant]
  4. DILTIAZEM HCL [Concomitant]
  5. ESOMEPRAZOLE MAGNESIUM [Concomitant]
  6. FUROSEMIDE [Concomitant]
  7. GUAIFENESINE [Concomitant]
  8. MECLIZINE [Concomitant]
  9. METOPROLOL SUCCINATE [Concomitant]
  10. METRONIDAZOLE [Concomitant]
  11. WARFARIN SODIUM [Concomitant]
  12. CELESTEROL [Concomitant]
  13. CLORACON [Concomitant]
  14. POTASSIUM CHLORIDE [Concomitant]
  15. SODIUM BICARBONATE IN PLASTIC CONTAINER [Concomitant]
  16. INSULIN ASPART [Concomitant]
  17. LEVABUTAROL [Concomitant]

REACTIONS (8)
  - ABDOMINAL DISTENSION [None]
  - ARRHYTHMIA [None]
  - DIABETES MELLITUS [None]
  - DIZZINESS [None]
  - FALL [None]
  - FEELING ABNORMAL [None]
  - HIP FRACTURE [None]
  - HYPERTENSION [None]
